FAERS Safety Report 25018275 (Version 1)
Quarter: 2025Q1

REPORT INFORMATION
  Report Type: Spontaneous
  Country: ES (occurrence: ES)
  Receive Date: 20250227
  Receipt Date: 20250227
  Transmission Date: 20250409
  Serious: Yes (Other)
  Sender: PFIZER
  Company Number: None

PATIENT
  Age: 56 Year
  Sex: Female

DRUGS (3)
  1. PIPERACILLIN SODIUM\TAZOBACTAM SODIUM [Interacting]
     Active Substance: PIPERACILLIN SODIUM\TAZOBACTAM SODIUM
     Dosage: 200 MG, 3X/DAY
     Dates: start: 20241230
  2. LINEZOLID [Interacting]
     Active Substance: LINEZOLID
     Dosage: 350 MG, 2X/DAY
     Route: 042
     Dates: start: 20241231, end: 20250113
  3. CITALOPRAM [Interacting]
     Active Substance: CITALOPRAM
     Dosage: 40 MG, 1X/DAY
     Dates: start: 20240923

REACTIONS (2)
  - Drug interaction [Recovered/Resolved]
  - Seizure [Recovered/Resolved]

NARRATIVE: CASE EVENT DATE: 20250112
